FAERS Safety Report 14200424 (Version 2)
Quarter: 2018Q3

REPORT INFORMATION
  Report Type: Spontaneous
  Country: US (occurrence: US)
  Receive Date: 20171117
  Receipt Date: 20180928
  Transmission Date: 20181010
  Serious: Yes (Other)
  Sender: FDA-Public Use
  Company Number: US-PFIZER INC-2017490359

PATIENT
  Age: 54 Year
  Sex: Female
  Weight: 74.84 kg

DRUGS (12)
  1. KLONOPIN [Concomitant]
     Active Substance: CLONAZEPAM
     Indication: ANXIETY
     Dosage: 0.5 MG, 2X/DAY
     Route: 048
  2. OMEPRAZOLE. [Concomitant]
     Active Substance: OMEPRAZOLE
     Indication: DYSPEPSIA
     Dosage: 20 MG, 2X/DAY
     Route: 048
  3. NEURONTIN [Suspect]
     Active Substance: GABAPENTIN
     Indication: FIBROMYALGIA
     Dosage: UNK
  4. LYRICA [Suspect]
     Active Substance: PREGABALIN
     Indication: FIBROMYALGIA
     Dosage: 150 MG, 4X/DAY
     Route: 048
  5. NEURONTIN [Suspect]
     Active Substance: GABAPENTIN
     Indication: NEUROPATHY PERIPHERAL
  6. TRIAMTERENE, HYDROCHLOROTHIAZIDE [Concomitant]
     Indication: HYPERTENSION
     Dosage: [HYDROCHLOROTHIAZIDE 25MG]/[TRIAMTERENE 37.5MG], 1X/DAY
     Route: 048
  7. LYRICA [Suspect]
     Active Substance: PREGABALIN
     Indication: NEUROPATHY PERIPHERAL
     Dosage: 150 MG, 2X/DAY
     Route: 048
  8. LYRICA [Suspect]
     Active Substance: PREGABALIN
     Indication: PAIN
     Dosage: 150 MG ONE CAPSULE EVERY MORNING, 1 CAPSULE AT NOON, THEN 2 CAPSULES EVERY NIGHT)
     Route: 048
  9. LYRICA [Suspect]
     Active Substance: PREGABALIN
     Indication: NEURALGIA
  10. LEVOTHYROXINE. [Concomitant]
     Active Substance: LEVOTHYROXINE
     Indication: HYPOTHYROIDISM
     Dosage: 125 UG, 1X/DAY
     Route: 048
  11. ALLOPURINOL. [Concomitant]
     Active Substance: ALLOPURINOL
     Indication: GOUT
     Dosage: 300 MG, 1X/DAY
     Route: 048
  12. CYMBALTA [Concomitant]
     Active Substance: DULOXETINE HYDROCHLORIDE
     Dosage: 60 MG, 1X/DAY
     Route: 048

REACTIONS (8)
  - Mental disorder [Unknown]
  - Visual impairment [Unknown]
  - Mobility decreased [Unknown]
  - Mental impairment [Unknown]
  - Product use in unapproved indication [Unknown]
  - Intentional product use issue [Unknown]
  - Off label use [Unknown]
  - Pain [Not Recovered/Not Resolved]
